FAERS Safety Report 18735471 (Version 1)
Quarter: 2021Q1

REPORT INFORMATION
  Report Type: Spontaneous
  Country: BR (occurrence: BR)
  Receive Date: 20210113
  Receipt Date: 20210113
  Transmission Date: 20210419
  Serious: Yes (Other)
  Sender: FDA-Public Use
  Company Number: BR-GLAXOSMITHKLINE-BR2020257767

PATIENT
  Age: 1 Year
  Sex: Male

DRUGS (1)
  1. AEROLIN [Suspect]
     Active Substance: ALBUTEROL
     Indication: PRODUCT USED FOR UNKNOWN INDICATION
     Dosage: UNK UNK, 6D
     Dates: start: 20190616

REACTIONS (4)
  - Extra dose administered [Unknown]
  - Ill-defined disorder [Recovered/Resolved]
  - Asthmatic crisis [Unknown]
  - Wheezing [Unknown]

NARRATIVE: CASE EVENT DATE: 201906
